FAERS Safety Report 9621200 (Version 1)
Quarter: 2013Q4

REPORT INFORMATION
  Report Type: Spontaneous
  Country: US (occurrence: None)
  Receive Date: 20131011
  Receipt Date: 20131011
  Transmission Date: 20140711
  Serious: Yes (Other)
  Sender: FDA-Public Use
  Company Number: None

PATIENT
  Age: 45 Year
  Sex: Female

DRUGS (3)
  1. BUSPIRONE [Suspect]
     Indication: ANXIETY
     Dosage: 1 5 MG, BID, PO
     Route: 048
     Dates: start: 201304, end: 201305
  2. DEXTROAMPHETAMINE [Suspect]
     Indication: ANXIETY
     Dosage: 3 10MG, BID, PO
     Route: 048
  3. DEXTROAMPHETAMINE [Suspect]
     Indication: ATTENTION DEFICIT/HYPERACTIVITY DISORDER
     Dosage: 3 10MG, BID, PO
     Route: 048

REACTIONS (1)
  - Nightmare [None]
